FAERS Safety Report 23836233 (Version 1)
Quarter: 2024Q2

REPORT INFORMATION
  Report Type: Spontaneous
  Country: US (occurrence: US)
  Receive Date: 20240509
  Receipt Date: 20240509
  Transmission Date: 20240716
  Serious: No
  Sender: FDA-Public Use
  Company Number: US-MYLANLABS-2024M1039834

PATIENT

DRUGS (1)
  1. LISDEXAMFETAMINE DIMESYLATE [Suspect]
     Active Substance: LISDEXAMFETAMINE DIMESYLATE
     Indication: Product used for unknown indication
     Dosage: UNK (40 MILLIGRAM)
     Route: 065
     Dates: start: 20231008, end: 20231010

REACTIONS (10)
  - Loss of personal independence in daily activities [Unknown]
  - Brain fog [Unknown]
  - Hot flush [Unknown]
  - Product substitution issue [Unknown]
  - Vision blurred [Unknown]
  - Dizziness [Unknown]
  - Fatigue [Unknown]
  - Headache [Unknown]
  - Heart rate increased [Unknown]
  - Nausea [Unknown]
